FAERS Safety Report 15474155 (Version 1)
Quarter: 2018Q4

REPORT INFORMATION
  Report Type: Spontaneous
  Country: DK (occurrence: DK)
  Receive Date: 20181008
  Receipt Date: 20181008
  Transmission Date: 20190205
  Serious: Yes (Hospitalization)
  Sender: FDA-Public Use
  Company Number: DK-SA-2018SA276422

PATIENT
  Age: 44 Year
  Sex: Female

DRUGS (2)
  1. OLOPATADINE. [Concomitant]
     Active Substance: OLOPATADINE
     Indication: CONJUNCTIVITIS ALLERGIC
     Dosage: STYRKE: 1 MG/ML
     Route: 050
     Dates: start: 20180419
  2. GAVISCON [Suspect]
     Active Substance: ALUMINUM HYDROXIDE\MAGNESIUM CARBONATE
     Indication: PRODUCT USED FOR UNKNOWN INDICATION
     Dosage: UNK
     Route: 048

REACTIONS (6)
  - Eczema [Recovering/Resolving]
  - Throat tightness [Recovering/Resolving]
  - Pharyngeal oedema [Recovering/Resolving]
  - Lip swelling [Recovering/Resolving]
  - Urticaria [Recovering/Resolving]
  - Hypersensitivity [Recovering/Resolving]

NARRATIVE: CASE EVENT DATE: 20180822
